FAERS Safety Report 8948564 (Version 2)
Quarter: 2013Q1

REPORT INFORMATION
  Report Type: Spontaneous
  Country: JP (occurrence: None)
  Receive Date: 20121123
  Receipt Date: 20121227
  Transmission Date: 20140127
  Serious: No
  Sender: FDA-Public Use
  Company Number: DSJ-2012-21304

PATIENT
  Age: 60 Year
  Sex: Male
  Weight: 72 kg

DRUGS (6)
  1. OLMETEC (OLMESARTAN MEDOXOMIL) (TABLET) (OLMESARTAN MEDOXOMIL) [Suspect]
     Indication: ESSENTIAL HYPERTENSION
     Route: 048
     Dates: start: 20100916, end: 20110618
  2. ADALAT [Suspect]
     Indication: PRODUCT USED FOR UNKNOWN INDICATION
  3. CARDENALIN [Suspect]
     Indication: PRODUCT USED FOR UNKNOWN INDICATION
     Dates: end: 20120121
  4. PLETAAL (CILOSTAZOL) (CILOSTAZOL) [Concomitant]
  5. BAYASPIRIN (ACETYLSALICYLIC ACID) (ACETYLSALICYLIC ACID) [Concomitant]
  6. GASTER  D (FAMOTIDINE) (FAMOTIDINE) [Concomitant]

REACTIONS (1)
  - Hypotension [None]
